FAERS Safety Report 8573688-1 (Version None)
Quarter: 2012Q3

REPORT INFORMATION
  Report Type: 
  Country: None (occurrence: None)
  Receive Date: 20120806
  Receipt Date: 20120803
  Transmission Date: 20120928
  Serious: Yes (Hospitalization, Other)
  Sender: FDA-Public Use
  Company Number: US-GLAXOSMITHKLINE-A0966431A

PATIENT
  Age: 41 Year
  Sex: Female
  Weight: 50 kg

DRUGS (5)
  1. FLOLAN [Suspect]
     Indication: PULMONARY ARTERIAL HYPERTENSION
     Dosage: 41NGKM SEE DOSAGE TEXT
     Route: 042
     Dates: start: 20080922
  2. TRACLEER [Concomitant]
     Dosage: 125MG TWICE PER DAY
  3. OXYGEN [Concomitant]
  4. WARFARIN SODIUM [Concomitant]
     Dosage: 5MG PER DAY
  5. REVATIO [Concomitant]
     Dosage: 20MG THREE TIMES PER DAY

REACTIONS (2)
  - PNEUMONIA [None]
  - PYREXIA [None]
